FAERS Safety Report 12459476 (Version 1)
Quarter: 2016Q2

REPORT INFORMATION
  Report Type: Spontaneous
  Country: US (occurrence: None)
  Receive Date: 20160610
  Receipt Date: 20160610
  Transmission Date: 20160815
  Serious: Yes (Hospitalization)
  Sender: FDA-Public Use
  Company Number: None

PATIENT
  Age: 67 Year
  Sex: Male
  Weight: 80.74 kg

DRUGS (2)
  1. NUCALA [Suspect]
     Active Substance: MEPOLIZUMAB
     Indication: ASTHMA
     Dosage: EVERY 4 WEEKS
     Route: 058
     Dates: start: 20160422
  2. NUCALA [Suspect]
     Active Substance: MEPOLIZUMAB
     Indication: ASTHMA
     Dosage: EVERY 4 WEEKS
     Route: 058
     Dates: start: 20160524

REACTIONS (3)
  - Asthma [None]
  - Chest discomfort [None]
  - Urticaria [None]

NARRATIVE: CASE EVENT DATE: 20160605
